FAERS Safety Report 24075713 (Version 1)
Quarter: 2024Q3

REPORT INFORMATION
  Report Type: Report from Study
  Country: US (occurrence: US)
  Receive Date: 20240710
  Receipt Date: 20240710
  Transmission Date: 20241016
  Serious: Yes (Hospitalization)
  Sender: PFIZER
  Company Number: US-SEATTLE GENETICS-2021SGN03466

PATIENT
  Age: 56 Year
  Sex: Female

DRUGS (4)
  1. TUKYSA [Suspect]
     Active Substance: TUCATINIB
     Dosage: 150 MG
     Dates: end: 202106
  2. TUKYSA [Suspect]
     Active Substance: TUCATINIB
     Dosage: UNK
     Dates: end: 20210823
  3. MORPHINE SULFATE [Suspect]
     Active Substance: MORPHINE SULFATE
     Dosage: UNK
  4. CAPECITABINE [Suspect]
     Active Substance: CAPECITABINE
     Dosage: UNK

REACTIONS (11)
  - Haematochezia [Unknown]
  - Incorrect dose administered [Unknown]
  - Dyspepsia [Unknown]
  - Abdominal discomfort [Unknown]
  - Pruritus [Unknown]
  - Mass [Unknown]
  - Neoplasm progression [Unknown]
  - Fatigue [Unknown]
  - Product confusion [Unknown]
  - Drug hypersensitivity [Unknown]
  - Wrong schedule [Unknown]

NARRATIVE: CASE EVENT DATE: 20210805
